FAERS Safety Report 19701590 (Version 1)
Quarter: 2021Q3

REPORT INFORMATION
  Report Type: Spontaneous
  Country: US (occurrence: US)
  Receive Date: 20210813
  Receipt Date: 20210813
  Transmission Date: 20211014
  Serious: Yes (Other)
  Sender: FDA-Public Use
  Company Number: US-PFIZER INC-202100987897

PATIENT
  Age: 58 Year
  Sex: Male
  Weight: 97.28 kg

DRUGS (42)
  1. NEXIUM 1?2?3 [Concomitant]
     Active Substance: AMOXICILLIN\CLARITHROMYCIN\ESOMEPRAZOLE
  2. PHENTERMINE HCL [Concomitant]
     Active Substance: PHENTERMINE HYDROCHLORIDE
  3. MONTELUKAST SODIUM NIPPON ZOKI [Concomitant]
  4. MULTIVITAMIN AND MINERAL [Concomitant]
     Active Substance: MINERALS\VITAMINS
  5. KLOR?CON [Concomitant]
     Active Substance: POTASSIUM CHLORIDE
  6. TOPIRAMATE ACCORD [Concomitant]
     Active Substance: TOPIRAMATE
  7. TRUVADA [Suspect]
     Active Substance: EMTRICITABINE\TENOFOVIR DISOPROXIL FUMARATE
     Indication: HIV INFECTION
     Dosage: 200?300MG, 4X/DAY
     Route: 048
     Dates: start: 20130509, end: 20130814
  8. NORVIR [Concomitant]
     Active Substance: RITONAVIR
  9. ALPRAZOLAM 1 A PHARMA [Concomitant]
  10. ARTHROTEC [Suspect]
     Active Substance: DICLOFENAC SODIUM\MISOPROSTOL
     Indication: ARTHRITIS
     Dosage: UNK
     Route: 048
  11. AMBIEN CR [Concomitant]
     Active Substance: ZOLPIDEM TARTRATE
  12. IBUPROFEN IB [Concomitant]
     Active Substance: IBUPROFEN
  13. XANAX [Concomitant]
     Active Substance: ALPRAZOLAM
  14. CEREFOLIN NAC [ACETYLCYSTEINE;CALCIUM LEVOMEFOLATE;MECOBALAMIN] [Concomitant]
     Active Substance: ACETYLCYSTEINE\LEVOMEFOLATE CALCIUM\METHYLCOBALAMIN
  15. EGRIFTA [Concomitant]
     Active Substance: TESAMORELIN ACETATE
  16. ZIDOVUDINE AZT [Concomitant]
     Active Substance: ZIDOVUDINE
  17. NAMENDA [Concomitant]
     Active Substance: MEMANTINE HYDROCHLORIDE
  18. VITAMIN B12 + FOLIC ACID [Concomitant]
     Active Substance: CYANOCOBALAMIN\FOLIC ACID
  19. OXYCONTIN [Concomitant]
     Active Substance: OXYCODONE HYDROCHLORIDE
  20. PROMETHAZINE [PROMETHAZINE HYDROCHLORIDE] [Concomitant]
     Active Substance: PROMETHAZINE HYDROCHLORIDE
  21. DYAZIDE [Concomitant]
     Active Substance: HYDROCHLOROTHIAZIDE\TRIAMTERENE
  22. CHANTIX [Concomitant]
     Active Substance: VARENICLINE TARTRATE
  23. LOSARTAN POTASSIUM ACCORD [Concomitant]
  24. MEMANTINE HCL [Concomitant]
     Active Substance: MEMANTINE
  25. GABAPENTIN. [Concomitant]
     Active Substance: GABAPENTIN
  26. SINGULAIR [Concomitant]
     Active Substance: MONTELUKAST SODIUM
  27. IMITREX DF [Concomitant]
     Active Substance: SUMATRIPTAN SUCCINATE
  28. TOPAMAX [Concomitant]
     Active Substance: TOPIRAMATE
  29. VIAGRA [Concomitant]
     Active Substance: SILDENAFIL CITRATE
  30. SPIRONOLACTONE A L [Concomitant]
     Active Substance: SPIRONOLACTONE
  31. HYDROCHLOROTHIAZIDE. [Concomitant]
     Active Substance: HYDROCHLOROTHIAZIDE
  32. ZOFRAN [Concomitant]
     Active Substance: ONDANSETRON HYDROCHLORIDE
  33. ADVAIR HFA [Concomitant]
     Active Substance: FLUTICASONE PROPIONATE\SALMETEROL XINAFOATE
  34. FOLTANX RF [Concomitant]
  35. DONEPEZIL HCL [Concomitant]
     Active Substance: DONEPEZIL HYDROCHLORIDE
  36. ISENTRESS [Concomitant]
     Active Substance: RALTEGRAVIR POTASSIUM
  37. LOPERAMIDE [Concomitant]
     Active Substance: LOPERAMIDE
  38. VENTOLIN [Concomitant]
     Active Substance: ALBUTEROL SULFATE
  39. LASIX + K [Concomitant]
     Active Substance: FUROSEMIDE\POTASSIUM CHLORIDE
  40. INTELENCE [Concomitant]
     Active Substance: ETRAVIRINE
  41. PERCOCET [OXYCODONE HYDROCHLORIDE;OXYCODONE TEREPHTHALATE;PARACETAMOL] [Concomitant]
     Active Substance: ACETAMINOPHEN\OXYCODONE HYDROCHLORIDE\OXYCODONE TEREPHTHALATE
  42. OXYCODONE WITH APAP [Concomitant]
     Active Substance: ACETAMINOPHEN\OXYCODONE HYDROCHLORIDE

REACTIONS (9)
  - Chronic kidney disease [Unknown]
  - Anxiety [Unknown]
  - Renal failure [Unknown]
  - Pain [Unknown]
  - Acute kidney injury [Unknown]
  - Emotional distress [Unknown]
  - Anhedonia [Unknown]
  - Economic problem [Unknown]
  - Osteonecrosis [Unknown]

NARRATIVE: CASE EVENT DATE: 20130509
